FAERS Safety Report 17892416 (Version 2)
Quarter: 2020Q3

REPORT INFORMATION
  Report Type: Spontaneous
  Country: DE (occurrence: DE)
  Receive Date: 20200613
  Receipt Date: 20200703
  Transmission Date: 20201103
  Serious: Yes (Other)
  Sender: FDA-Public Use
  Company Number: DE-AUROBINDO-AUR-APL-2020-028787

PATIENT
  Sex: Female
  Weight: 95 kg

DRUGS (2)
  1. LEVOFLOXACIN AUROBINDO FILM?COATED TABLETS 500MG [Suspect]
     Active Substance: LEVOFLOXACIN
     Indication: CYSTITIS
  2. LEVOFLOXACIN AUROBINDO FILM?COATED TABLETS 500MG [Suspect]
     Active Substance: LEVOFLOXACIN
     Indication: INFLAMMATION
     Dosage: 1 DOSAGE FORM, DAILY
     Route: 048
     Dates: start: 20200603

REACTIONS (4)
  - Choking [Unknown]
  - Restlessness [Not Recovered/Not Resolved]
  - Sense of oppression [Not Recovered/Not Resolved]
  - Dyspnoea [Recovered/Resolved]

NARRATIVE: CASE EVENT DATE: 20200604
